FAERS Safety Report 6345194-6 (Version None)
Quarter: 2009Q3

REPORT INFORMATION
  Report Type: 
  Country: None (occurrence: None)
  Receive Date: 20090909
  Receipt Date: 20090902
  Transmission Date: 20100115
  Serious: Yes (Other)
  Sender: FDA-Public Use
  Company Number: US-JNJFOC-20090902280

PATIENT
  Age: 69 Year
  Sex: Male

DRUGS (2)
  1. LEVAQUIN [Suspect]
     Indication: DIVERTICULITIS
     Route: 048
     Dates: start: 20090801, end: 20090801
  2. ADVIL [Concomitant]
     Route: 065

REACTIONS (2)
  - PURPURA [None]
  - PYREXIA [None]
